FAERS Safety Report 9482738 (Version 2)
Quarter: 2013Q3

REPORT INFORMATION
  Report Type: Report from Study
  Country: DE (occurrence: DE)
  Receive Date: 20130828
  Receipt Date: 20130926
  Transmission Date: 20140515
  Serious: Yes (Hospitalization, Disabling)
  Sender: FDA-Public Use
  Company Number: DE-TEVA-428383GER

PATIENT
  Sex: Female

DRUGS (16)
  1. DOXORUBICIN [Suspect]
     Indication: B-CELL LYMPHOMA
     Route: 042
     Dates: start: 20130410, end: 20130628
  2. PREDNISONE [Suspect]
     Indication: B-CELL LYMPHOMA
     Dosage: 600 MG, 6 DAY PER CYCLE
     Route: 048
     Dates: start: 20130409, end: 20130702
  3. VINCRISTINE [Suspect]
     Indication: B-CELL LYMPHOMA
     Route: 042
     Dates: start: 20130410, end: 20130612
  4. METHOTREXATE [Suspect]
     Indication: B-CELL LYMPHOMA
     Dosage: 300 MILLIGRAM DAILY;
     Route: 042
     Dates: start: 20130321, end: 20130321
  5. CYCLOPHOSPHAMIDE [Suspect]
     Indication: B-CELL LYMPHOMA
     Route: 042
     Dates: start: 20130410, end: 20130628
  6. LEUCOVORIN [Suspect]
     Indication: B-CELL LYMPHOMA
     Dosage: 1950 MILLIGRAM DAILY;
     Route: 042
     Dates: start: 20130322
  7. RITUXIMAB [Suspect]
     Indication: B-CELL LYMPHOMA
     Route: 042
     Dates: start: 20130319
  8. PEGFILGRASTIM [Suspect]
     Indication: B-CELL LYMPHOMA
     Route: 058
     Dates: start: 20130412, end: 20130630
  9. GRANISETRON [Concomitant]
     Route: 042
     Dates: start: 20130410, end: 20130628
  10. MESNA [Concomitant]
     Dosage: 64.2857 MILLIGRAM DAILY;
     Route: 048
     Dates: start: 20130410, end: 20130628
  11. ACICLOVIR [Concomitant]
     Dosage: 1200 MILLIGRAM DAILY;
     Route: 048
     Dates: start: 20130410
  12. LEVOFLOXACIN [Concomitant]
     Dosage: 500 MG, 7 DAYS EACH CYCLE
     Route: 048
     Dates: start: 20130414
  13. RAMIPRIL [Concomitant]
     Indication: HYPERTENSION
     Dosage: 5 MILLIGRAM DAILY;
     Route: 048
  14. POTASSIUM SODIUM HYDROGEN CITRATE [Concomitant]
  15. MACROGOL//SOLDIUM CHLORIDE/SODIUM HYDROGEN CARBONATE/POTASSIUM CHLORID [Concomitant]
  16. SULFAMETHOXAZOLE W/TRIMETHOPRIM [Concomitant]
     Dates: start: 20130413

REACTIONS (3)
  - Pulmonary embolism [Not Recovered/Not Resolved]
  - Cardiomyopathy [Not Recovered/Not Resolved]
  - Mitral valve disease [Not Recovered/Not Resolved]
